FAERS Safety Report 20721284 (Version 2)
Quarter: 2022Q2

REPORT INFORMATION
  Report Type: Report from Study
  Country: US (occurrence: US)
  Receive Date: 20220418
  Receipt Date: 20220510
  Transmission Date: 20220721
  Serious: Yes (Life-Threatening, Other)
  Sender: FDA-Public Use
  Company Number: US-EXELIXIS-CABO-22049311

PATIENT
  Sex: Male

DRUGS (3)
  1. CABOMETYX [Suspect]
     Active Substance: CABOZANTINIB S-MALATE
     Indication: Renal cancer
     Dosage: 40 MG, QD
     Route: 048
     Dates: start: 20220204
  2. OMEPRAZOLE [Concomitant]
     Active Substance: OMEPRAZOLE
     Dosage: UNK
  3. METHADONE [Concomitant]
     Active Substance: METHADONE HYDROCHLORIDE
     Dosage: UNK

REACTIONS (10)
  - Terminal state [Unknown]
  - Decreased appetite [Recovered/Resolved]
  - Incoherent [Unknown]
  - Musculoskeletal chest pain [Unknown]
  - General physical health deterioration [Unknown]
  - Mental disorder [Unknown]
  - Thyroid disorder [Unknown]
  - Fear [Unknown]
  - Nausea [Recovered/Resolved]
  - Therapy non-responder [Unknown]
